FAERS Safety Report 8861993 (Version 7)
Quarter: 2013Q1

REPORT INFORMATION
  Report Type: Spontaneous
  Country: JP (occurrence: JP)
  Receive Date: 20121025
  Receipt Date: 20130315
  Transmission Date: 20140127
  Serious: Yes (Death, Life-Threatening, Disabling, Other)
  Sender: FDA-Public Use
  Company Number: JP-JNJFOC-20121011664

PATIENT
  Age: 75 Year
  Sex: Male
  Weight: 58 kg

DRUGS (17)
  1. TRAMCET [Suspect]
     Indication: SPINAL COLUMN STENOSIS
     Dosage: 1 PER DAY
     Route: 048
     Dates: start: 20120918, end: 20120927
  2. TRAMCET [Suspect]
     Indication: SPINAL COLUMN STENOSIS
     Dosage: 1 PER DAY
     Route: 048
     Dates: start: 20121001, end: 20121015
  3. TRAMCET [Suspect]
     Indication: PAIN
     Dosage: 1 PER DAY
     Route: 048
     Dates: start: 20120918, end: 20120927
  4. TRAMCET [Suspect]
     Indication: PAIN
     Dosage: 1 PER DAY
     Route: 048
     Dates: start: 20121001, end: 20121015
  5. PRORENAL [Concomitant]
     Indication: SPINAL COLUMN STENOSIS
     Dosage: 3 PER 1 DAY
     Route: 048
     Dates: start: 20120913, end: 20120927
  6. ZYLORIC [Concomitant]
     Indication: HYPERURICAEMIA
     Dosage: ONCE EVERY HOUR
     Route: 048
     Dates: start: 20101229, end: 20121015
  7. LYRICA [Concomitant]
     Indication: SPINAL COLUMN STENOSIS
     Dosage: 1 PER DAY
     Route: 048
     Dates: start: 20120319, end: 20121015
  8. LYRICA [Concomitant]
     Indication: PAIN
     Dosage: 1 PER DAY
     Route: 048
     Dates: start: 20120319, end: 20121015
  9. CELECOX [Concomitant]
     Indication: SPINAL COLUMN STENOSIS
     Dosage: 100 MG 2 PER DAY
     Route: 048
     Dates: start: 20120416, end: 20121015
  10. CELECOX [Concomitant]
     Indication: PAIN
     Dosage: 100 MG 2 PER DAY
     Route: 048
     Dates: start: 20120416, end: 20121015
  11. TETRAMIDE [Concomitant]
     Indication: DEPRESSION
     Route: 048
     Dates: end: 20121015
  12. AMOBAN [Concomitant]
     Indication: DEPRESSION
     Route: 048
     Dates: end: 20121015
  13. DEPAS [Concomitant]
     Indication: DEPRESSION
     Route: 048
     Dates: end: 20121015
  14. CERCINE [Concomitant]
     Indication: DEPRESSION
     Route: 048
     Dates: end: 20121015
  15. MUCOSTA [Concomitant]
     Indication: PROPHYLAXIS AGAINST GASTROINTESTINAL ULCER
     Route: 048
     Dates: end: 20121015
  16. LOXONIN [Concomitant]
     Indication: SPINAL COLUMN STENOSIS
     Dosage: 3 PER DAY
     Route: 048
     Dates: end: 20121015
  17. OPALMON [Concomitant]
     Indication: SPINAL COLUMN STENOSIS
     Dosage: 3 PER DAY
     Route: 048
     Dates: start: 20120416, end: 20120507

REACTIONS (6)
  - Interstitial lung disease [Fatal]
  - Prerenal failure [Recovered/Resolved]
  - Hypoalbuminaemia [Not Recovered/Not Resolved]
  - Pancreatitis [Not Recovered/Not Resolved]
  - Hepatic enzyme increased [Not Recovered/Not Resolved]
  - Drug ineffective [Unknown]
